FAERS Safety Report 8319285-4 (Version None)
Quarter: 2012Q2

REPORT INFORMATION
  Report Type: 
  Country: None (occurrence: None)
  Receive Date: 20120427
  Receipt Date: 20090909
  Transmission Date: 20120825
  Serious: No
  Sender: FDA-Public Use
  Company Number: US-TEVA-2009010266

PATIENT
  Sex: Female
  Weight: 62.652 kg

DRUGS (7)
  1. BACLOFEN [Concomitant]
  2. CLONAZEPAM [Concomitant]
  3. NEURONTIN [Concomitant]
  4. ELAVIL [Concomitant]
  5. NUVIGIL [Suspect]
     Indication: FATIGUE
     Dosage: 150 MILLIGRAM;
     Route: 048
     Dates: start: 20090826, end: 20090903
  6. TYSABRI [Concomitant]
  7. VITAMIN TAB [Concomitant]

REACTIONS (4)
  - NAUSEA [None]
  - DIZZINESS [None]
  - DRUG EFFECT DECREASED [None]
  - HEADACHE [None]
